FAERS Safety Report 6354518-5 (Version None)
Quarter: 2009Q3

REPORT INFORMATION
  Report Type: 
  Country: None (occurrence: None)
  Receive Date: 20090909
  Receipt Date: 20090826
  Transmission Date: 20100115
  Serious: Yes (Hospitalization)
  Sender: FDA-Public Use
  Company Number: 8051014

PATIENT
  Age: 76 Year
  Sex: Female

DRUGS (3)
  1. KEPPRA [Suspect]
     Indication: CONVULSION
     Dosage: 500 MG /D
     Dates: start: 20090816
  2. ATIVAN [Suspect]
  3. VIMPAT [Suspect]
     Dosage: 150 MG 2/D IV
     Route: 042

REACTIONS (6)
  - ALANINE AMINOTRANSFERASE INCREASED [None]
  - ASPARTATE AMINOTRANSFERASE INCREASED [None]
  - CONDITION AGGRAVATED [None]
  - CONVULSION [None]
  - LIVER FUNCTION TEST ABNORMAL [None]
  - RASH [None]
